FAERS Safety Report 24603906 (Version 2)
Quarter: 2024Q4

REPORT INFORMATION
  Report Type: Spontaneous
  Country: JP (occurrence: JP)
  Receive Date: 20241111
  Receipt Date: 20241224
  Transmission Date: 20250115
  Serious: Yes (Other)
  Sender: MERCK
  Company Number: JP-MSD-M2024-46145

PATIENT
  Age: 10 Decade
  Sex: Female

DRUGS (1)
  1. CUBICIN [Suspect]
     Active Substance: DAPTOMYCIN
     Indication: Arthritis
     Dosage: UNK
     Route: 041

REACTIONS (1)
  - Gastrointestinal haemorrhage [Unknown]
